FAERS Safety Report 18794789 (Version 1)
Quarter: 2021Q1

REPORT INFORMATION
  Report Type: Report from Study
  Country: TW (occurrence: TW)
  Receive Date: 20210127
  Receipt Date: 20210127
  Transmission Date: 20210419
  Serious: Yes (Hospitalization, Other)
  Sender: FDA-Public Use
  Company Number: TW-ASTELLAS-2021US002965

PATIENT
  Age: 70 Year
  Sex: Male

DRUGS (14)
  1. FLUCYTOSINE. [Suspect]
     Active Substance: FLUCYTOSINE
     Indication: DISSEMINATED CRYPTOCOCCOSIS
     Dosage: UNK, UNKNOWN FREQ.
     Route: 065
     Dates: start: 20190310
  2. VELCADE [Concomitant]
     Active Substance: BORTEZOMIB
     Indication: PRODUCT USED FOR UNKNOWN INDICATION
     Dosage: UNK UNK, UNKNOWN FREQ.
     Route: 065
  3. THALIDOMIDE [Concomitant]
     Active Substance: THALIDOMIDE
     Indication: PRODUCT USED FOR UNKNOWN INDICATION
     Dosage: UNK, UNKNOWN FREQ.
     Route: 065
  4. PIOGLITAZONE. [Suspect]
     Active Substance: PIOGLITAZONE
     Indication: PRODUCT USED FOR UNKNOWN INDICATION
     Route: 048
  5. AMPHOTERICIN B, LIPOSOME [Suspect]
     Active Substance: AMPHOTERICIN B
     Indication: DISSEMINATED CRYPTOCOCCOSIS
     Dosage: UNK UNK, UNKNOWN FREQ.
     Route: 065
     Dates: start: 201903
  6. DARZALEX [Suspect]
     Active Substance: DARATUMUMAB
     Indication: PLASMA CELL MYELOMA
     Route: 065
     Dates: start: 20190122
  7. GLIPIZIDE. [Concomitant]
     Active Substance: GLIPIZIDE
     Indication: PRODUCT USED FOR UNKNOWN INDICATION
     Dosage: UNK, UNKNOWN FREQ.
     Route: 065
  8. FLUCONAZOLE. [Suspect]
     Active Substance: FLUCONAZOLE
     Indication: CRYPTOCOCCOSIS
     Dosage: UNK UNK, UNKNOWN FREQ.
     Route: 042
     Dates: start: 20190318, end: 20190415
  9. ONGLYZA [Concomitant]
     Active Substance: SAXAGLIPTIN HYDROCHLORIDE
     Indication: PRODUCT USED FOR UNKNOWN INDICATION
     Dosage: UNK, UNKNOWN FREQ.
     Route: 065
  10. POMALIDOMIDE [Concomitant]
     Active Substance: POMALIDOMIDE
     Indication: PRODUCT USED FOR UNKNOWN INDICATION
     Dosage: UNK, UNKNOWN FREQ.
     Route: 065
  11. SENNAPUR [Concomitant]
     Indication: PRODUCT USED FOR UNKNOWN INDICATION
     Dosage: UNK UNK, UNKNOWN FREQ.
     Route: 065
  12. ROSUVASTIN [Concomitant]
     Active Substance: ROSUVASTATIN
     Indication: PRODUCT USED FOR UNKNOWN INDICATION
     Dosage: UNK, UNKNOWN FREQ.
     Route: 065
  13. LENALIDOMIDE [Concomitant]
     Active Substance: LENALIDOMIDE
     Indication: PRODUCT USED FOR UNKNOWN INDICATION
     Dosage: UNK, UNKNOWN FREQ.
     Route: 065
  14. DEXAMETHASONE. [Concomitant]
     Active Substance: DEXAMETHASONE
     Indication: PRODUCT USED FOR UNKNOWN INDICATION
     Dosage: UNK, UNKNOWN FREQ.
     Route: 065

REACTIONS (8)
  - Hypokalaemia [Recovering/Resolving]
  - Hepatic enzyme increased [Unknown]
  - Blood creatinine increased [Unknown]
  - Herpes simplex [Unknown]
  - Myelosuppression [Unknown]
  - Hyponatraemia [Unknown]
  - Pneumonia [Recovering/Resolving]
  - Oral candidiasis [Unknown]

NARRATIVE: CASE EVENT DATE: 201903
